FAERS Safety Report 26099131 (Version 2)
Quarter: 2025Q4

REPORT INFORMATION
  Report Type: Report from Study
  Country: EU (occurrence: EU)
  Receive Date: 20251128
  Receipt Date: 20251229
  Transmission Date: 20260118
  Serious: No
  Sender: ALEXION PHARMACEUTICALS
  Company Number: EU-ASTRAZENECA-202511GLO017693DE

PATIENT
  Age: 65 Year
  Sex: Female
  Weight: 80 kg

DRUGS (5)
  1. DURVALUMAB [Suspect]
     Active Substance: DURVALUMAB
     Indication: Hepatocellular carcinoma
     Dosage: 1500 MILLIGRAM
     Route: 065
     Dates: start: 20250923, end: 20251014
  2. GEMCITABINE [Suspect]
     Active Substance: GEMCITABINE
     Dosage: 1000 MILLIGRAM/SQ. METER
     Route: 065
     Dates: start: 20250923, end: 20250930
  3. GEMCITABINE [Suspect]
     Active Substance: GEMCITABINE
     Dosage: 750 MILLIGRAM/SQ. METER
     Route: 065
     Dates: start: 20251104, end: 20251111
  4. CISPLATIN [Suspect]
     Active Substance: CISPLATIN
     Dosage: 25 MILLIGRAM/SQ. METER
     Route: 065
     Dates: start: 20250923, end: 20250930
  5. CISPLATIN [Suspect]
     Active Substance: CISPLATIN
     Dosage: 18.75 MILLIGRAM/SQ. METER
     Route: 065
     Dates: start: 20251104, end: 20251111

REACTIONS (1)
  - Neutrophil count decreased [Recovered/Resolved]

NARRATIVE: CASE EVENT DATE: 20251020
